FAERS Safety Report 8449830-X (Version None)
Quarter: 2012Q2

REPORT INFORMATION
  Report Type: 
  Country: None (occurrence: None)
  Receive Date: 20120620
  Receipt Date: 20120606
  Transmission Date: 20120825
  Serious: Yes (Hospitalization, Other)
  Sender: FDA-Public Use
  Company Number: CH-ELI_LILLY_AND_COMPANY-CH201206002686

PATIENT
  Age: 68 Year
  Sex: Male

DRUGS (12)
  1. FLUOXETINE HYDROCHLORIDE [Suspect]
     Dosage: 40 MG, QD
  2. LITHIUM CITRATE [Concomitant]
     Dosage: UNK
  3. TRAZODONE HCL [Concomitant]
     Dosage: UNK
  4. FLURAZEPAM [Concomitant]
     Dosage: UNK
  5. CYMBALTA [Suspect]
     Dosage: 90 MG, QD
  6. DUTASTERIDE/TAMSULOSIN HYDROCHLORIDE [Concomitant]
  7. METFORMIN HCL [Concomitant]
     Dosage: UNK
  8. SINTROM [Concomitant]
     Dosage: UNK
     Dates: end: 20120113
  9. SINTROM [Concomitant]
     Dosage: 1 MG, UNKNOWN
  10. PLAVIX [Concomitant]
     Dosage: 75 MG, QD
     Dates: end: 20120113
  11. PRAVASTATIN [Concomitant]
     Dosage: UNK
  12. CLOTIAPINE [Concomitant]
     Dosage: UNK

REACTIONS (4)
  - DUODENITIS [None]
  - MICROCYTIC ANAEMIA [None]
  - GASTROINTESTINAL HAEMORRHAGE [None]
  - DRUG INTERACTION [None]
